FAERS Safety Report 16868580 (Version 1)
Quarter: 2019Q4

REPORT INFORMATION
  Report Type: Spontaneous
  Country: US (occurrence: US)
  Receive Date: 20190930
  Receipt Date: 20190930
  Transmission Date: 20200122
  Serious: Yes (Hospitalization)
  Sender: FDA-Public Use
  Company Number: None

PATIENT
  Sex: Female

DRUGS (10)
  1. DEFERASIROX. [Suspect]
     Active Substance: DEFERASIROX
     Indication: SICKLE CELL DISEASE
     Route: 048
     Dates: start: 20190514
  2. HYDROXYUREA. [Concomitant]
     Active Substance: HYDROXYUREA
  3. RISPERIDONE. [Concomitant]
     Active Substance: RISPERIDONE
  4. VITAMIN D [Concomitant]
     Active Substance: VITAMIN D NOS
  5. DEFERASIROX. [Suspect]
     Active Substance: DEFERASIROX
     Indication: SICKLE CELL DISEASE
     Route: 048
     Dates: start: 20190514
  6. ADDERALL [Concomitant]
     Active Substance: AMPHETAMINE ASPARTATE\AMPHETAMINE SULFATE\DEXTROAMPHETAMINE SACCHARATE\DEXTROAMPHETAMINE SULFATE
  7. CARBATROL [Concomitant]
     Active Substance: CARBAMAZEPINE
  8. INTUNIV [Concomitant]
     Active Substance: GUANFACINE HYDROCHLORIDE
  9. PENICILLIN [Concomitant]
     Active Substance: PENICILLIN
  10. SERTRALINE [Concomitant]
     Active Substance: SERTRALINE HYDROCHLORIDE

REACTIONS (2)
  - Product dose omission [None]
  - Transfusion [None]
